FAERS Safety Report 5874049-6 (Version None)
Quarter: 2008Q3

REPORT INFORMATION
  Report Type: 
  Country: None (occurrence: None)
  Receive Date: 20080829
  Receipt Date: 20080820
  Transmission Date: 20090109
  Serious: Yes (Hospitalization)
  Sender: FDA-Public Use
  Company Number: 6045075

PATIENT
  Age: 93 Year
  Sex: Male

DRUGS (7)
  1. CARDENSIEL 1.25 MG(1.25 MG, COATED TABLET) (BISOPROLOL FUMARATE) [Suspect]
     Indication: CARDIAC FAILURE CHRONIC
     Dosage: ORAL
     Route: 048
     Dates: start: 20080606, end: 20080611
  2. LEVOTHYROXINE SODIUM [Concomitant]
  3. ALLOPURINOL [Concomitant]
  4. AMIODARONE HCL [Concomitant]
  5. PREVISCAN (FLUINDIONE) [Concomitant]
  6. FUROSEMIDE [Concomitant]
  7. LORAZEPAM [Concomitant]

REACTIONS (3)
  - GENERALISED ERYTHEMA [None]
  - PRURITUS [None]
  - TOXIC SKIN ERUPTION [None]
